FAERS Safety Report 25657777 (Version 1)
Quarter: 2025Q3

REPORT INFORMATION
  Report Type: Spontaneous
  Country: EU (occurrence: EU)
  Receive Date: 20250808
  Receipt Date: 20250808
  Transmission Date: 20251020
  Serious: Yes (Other)
  Sender: TEVA
  Company Number: None

PATIENT
  Age: 58 Year
  Sex: Female
  Weight: 63 kg

DRUGS (5)
  1. DIAZEPAM [Suspect]
     Active Substance: DIAZEPAM
     Indication: Mixed anxiety and depressive disorder
     Route: 048
     Dates: start: 20250615, end: 20250625
  2. DIAZEPAM [Suspect]
     Active Substance: DIAZEPAM
     Indication: Mixed anxiety and depressive disorder
     Route: 048
     Dates: end: 20250614
  3. ALCOHOL [Suspect]
     Active Substance: ALCOHOL
     Indication: Product used for unknown indication
     Route: 048
     Dates: end: 20250614
  4. ALCOHOL [Suspect]
     Active Substance: ALCOHOL
     Indication: Product used for unknown indication
     Dosage: DOSAGE: 6 ARB^U
     Route: 048
     Dates: start: 20250615, end: 20250625
  5. TEGRETOL [Suspect]
     Active Substance: CARBAMAZEPINE
     Indication: Bipolar II disorder
     Dosage: PROLONGED-RELEASE FILM-COATED TABLET
     Route: 048
     Dates: start: 202506, end: 20250703

REACTIONS (1)
  - Hepatocellular injury [Recovering/Resolving]

NARRATIVE: CASE EVENT DATE: 20250625
